FAERS Safety Report 7851512-X (Version None)
Quarter: 2011Q4

REPORT INFORMATION
  Report Type: 
  Country: None (occurrence: None)
  Receive Date: 20111026
  Receipt Date: 20111019
  Transmission Date: 20120403
  Serious: Yes (Other)
  Sender: FDA-Public Use
  Company Number: JP-JNJFOC-20110909408

PATIENT
  Age: 5 Decade
  Sex: Male

DRUGS (3)
  1. PROCHLORPERAZINE [Concomitant]
     Dosage: 1 PER 1 DAY
     Route: 048
     Dates: start: 20110915, end: 20110916
  2. TRAMADOL HYDROCHLORIDE/ACETAMINOPHEN [Suspect]
     Indication: PAIN
     Dosage: 2 DOSES, 1 PER 1 DAY
     Route: 048
     Dates: start: 20110915, end: 20110917
  3. TRAMADOL HYDROCHLORIDE/ACETAMINOPHEN [Suspect]
     Indication: CERVICOBRACHIAL SYNDROME
     Dosage: 2 DOSES, 1 PER 1 DAY
     Route: 048
     Dates: start: 20110915, end: 20110917

REACTIONS (4)
  - ANAPHYLACTIC REACTION [None]
  - HAEMORRHAGE SUBCUTANEOUS [None]
  - DRUG ERUPTION [None]
  - DRUG INEFFECTIVE [None]
